FAERS Safety Report 7776105-4 (Version None)
Quarter: 2011Q3

REPORT INFORMATION
  Report Type: 
  Country: None (occurrence: None)
  Receive Date: 20110925
  Receipt Date: 20110526
  Transmission Date: 20111222
  Serious: Yes (Other)
  Sender: FDA-Public Use
  Company Number: PHEH2011US04314

PATIENT
  Sex: Female

DRUGS (10)
  1. OMEPRAZOLE [Concomitant]
     Dosage: UNK UKN, UNK
  2. XOPENEX [Concomitant]
     Dosage: UNK UKN, UNK
  3. TOBI [Suspect]
     Indication: CHRONIC RESPIRATORY FAILURE
     Dosage: 300 MG, BID, USING NEBULIZER
     Dates: start: 20100130
  4. BUDESONIDE [Concomitant]
     Dosage: UNK UKN, UNK
  5. SODIUM CHLORIDE INJ [Concomitant]
     Dosage: UNK UKN, UNK
  6. POLY-VI-SOL                             /USA/ [Concomitant]
     Dosage: UNK UKN, UNK
  7. IBUPROFEN [Concomitant]
     Dosage: UNK UKN, UNK
  8. ACETYLCYSTEINE [Concomitant]
     Dosage: UNK UKN, UNK
  9. BIPHENYL DICARBOXYLATE [Concomitant]
     Dosage: UNK UKN, UNK
  10. LEVOCARNITINE [Concomitant]

REACTIONS (1)
  - RENAL TUBULAR ACIDOSIS [None]
